FAERS Safety Report 5876789-1 (Version None)
Quarter: 2008Q3

REPORT INFORMATION
  Report Type: 
  Country: None (occurrence: None)
  Receive Date: 20080910
  Receipt Date: 20080826
  Transmission Date: 20090109
  Serious: Yes (Hospitalization)
  Sender: FDA-Public Use
  Company Number: FR-GENENTECH-263555

PATIENT
  Sex: Female

DRUGS (2)
  1. BEVACIZUMAB [Suspect]
     Indication: BREAST CANCER METASTATIC
     Dosage: 15 MG/KG, UNK
     Route: 042
     Dates: start: 20071110
  2. IXABEPILONE [Suspect]
     Indication: BREAST CANCER METASTATIC
     Dosage: 63.2 MG, UNK
     Route: 042
     Dates: start: 20071110

REACTIONS (1)
  - TUMOUR PAIN [None]
